FAERS Safety Report 12670342 (Version 1)
Quarter: 2016Q3

REPORT INFORMATION
  Report Type: Report from Study
  Country: US (occurrence: US)
  Receive Date: 20160822
  Receipt Date: 20160822
  Transmission Date: 20161109
  Serious: Yes (Death)
  Sender: FDA-Public Use
  Company Number: US-ROCHE-1813425

PATIENT
  Age: 47 Year
  Sex: Male
  Weight: 73.3 kg

DRUGS (8)
  1. RITUXIMAB [Suspect]
     Active Substance: RITUXIMAB
     Indication: CHRONIC LYMPHOCYTIC LEUKAEMIA
     Dosage: 375 MG/M2 3 TIMES IV PUSH
     Route: 042
     Dates: start: 20080122
  2. CYCLOPHOSPHAMIDE. [Concomitant]
     Active Substance: CYCLOPHOSPHAMIDE
     Route: 065
     Dates: start: 20080124
  3. RITUXIMAB [Suspect]
     Active Substance: RITUXIMAB
     Dosage: 375 MG/M2 3 TIMES IV PUSH
     Route: 042
     Dates: start: 20080227
  4. RITUXIMAB [Suspect]
     Active Substance: RITUXIMAB
     Dosage: 375 MG/M2 3 TIMES IV PUSH
     Route: 042
     Dates: start: 20080220
  5. MYCOPHENOLATE MOFETIL. [Concomitant]
     Active Substance: MYCOPHENOLATE MOFETIL
     Route: 065
     Dates: start: 20080127
  6. TIGECYCLINE. [Concomitant]
     Active Substance: TIGECYCLINE
  7. CYCLOSPORINE. [Concomitant]
     Active Substance: CYCLOSPORINE
     Route: 065
     Dates: start: 20080127
  8. FLUDARABINE [Concomitant]
     Active Substance: FLUDARABINE PHOSPHATE
     Route: 065
     Dates: start: 20080124, end: 20080128

REACTIONS (2)
  - Gastrointestinal disorder [Fatal]
  - Diarrhoea [Fatal]

NARRATIVE: CASE EVENT DATE: 20080409
